FAERS Safety Report 20236447 (Version 1)
Quarter: 2021Q4

REPORT INFORMATION
  Report Type: Spontaneous
  Country: PT (occurrence: PT)
  Receive Date: 20211228
  Receipt Date: 20211228
  Transmission Date: 20220304
  Serious: Yes (Other)
  Sender: FDA-Public Use
  Company Number: PT-NOVARTISPH-NVSC2021PT295136

PATIENT
  Age: 54 Year
  Sex: Female

DRUGS (4)
  1. PEMETREXED [Suspect]
     Active Substance: PEMETREXED
     Indication: Lung adenocarcinoma
     Dosage: UNK, Q3W (DOSE 1)
     Route: 065
     Dates: start: 201809, end: 202106
  2. CARBOPLATIN [Suspect]
     Active Substance: CARBOPLATIN
     Indication: Lung adenocarcinoma
     Dosage: UNK, Q3W
     Route: 065
     Dates: start: 201809, end: 202106
  3. KEYTRUDA [Suspect]
     Active Substance: PEMBROLIZUMAB
     Indication: Lung adenocarcinoma
     Dosage: UNK, Q3W (DOSE 1)
     Route: 065
     Dates: start: 201809, end: 202106
  4. LASIX [Concomitant]
     Active Substance: FUROSEMIDE
     Indication: Diuretic therapy
     Dosage: 40 MILLIGRAM
     Route: 065

REACTIONS (7)
  - Hepatic lesion [Unknown]
  - Oedema peripheral [Unknown]
  - Hepatic function abnormal [Unknown]
  - Malignant neoplasm progression [Recovering/Resolving]
  - Drug resistance [Unknown]
  - Asthenia [Unknown]
  - Product use issue [Unknown]

NARRATIVE: CASE EVENT DATE: 20200101
